FAERS Safety Report 14745594 (Version 1)
Quarter: 2018Q2

REPORT INFORMATION
  Report Type: Report from Study
  Country: US (occurrence: US)
  Receive Date: 20180411
  Receipt Date: 20180411
  Transmission Date: 20180711
  Serious: No
  Sender: FDA-Public Use
  Company Number: US-ROCHE-2104797

PATIENT
  Sex: Female
  Weight: 114.41 kg

DRUGS (1)
  1. OCREVUS [Suspect]
     Active Substance: OCRELIZUMAB
     Indication: MULTIPLE SCLEROSIS
     Dosage: FULL DOSE ON 03/APR/2018.
     Route: 065
     Dates: start: 20170922

REACTIONS (2)
  - Pain [Unknown]
  - Urinary tract infection [Unknown]
